FAERS Safety Report 10082283 (Version 2)
Quarter: 2014Q2

REPORT INFORMATION
  Report Type: Spontaneous
  Country: IT (occurrence: IT)
  Receive Date: 20140416
  Receipt Date: 20140416
  Transmission Date: 20141212
  Serious: Yes (Other)
  Sender: FDA-Public Use
  Company Number: IT-WATSON-2014-07097

PATIENT
  Age: 67 Year
  Sex: Male

DRUGS (3)
  1. ZOLPIDEM (UNKNOWN) [Suspect]
     Indication: INSOMNIA
     Dosage: 10 MG, DAILY
     Route: 048
     Dates: start: 20131008, end: 20131023
  2. EN [Concomitant]
     Indication: ANXIETY
     Dosage: 2 MG, UNKNOWN
     Route: 048
  3. PAROXETINE                         /00830802/ [Concomitant]
     Indication: DYSTHYMIC DISORDER
     Dosage: 20 MG, UNKNOWN
     Route: 048

REACTIONS (2)
  - Insomnia [Unknown]
  - No therapeutic response [Unknown]
